FAERS Safety Report 5188715-1 (Version None)
Quarter: 2006Q4

REPORT INFORMATION
  Report Type: 
  Country: None (occurrence: None)
  Receive Date: 20061214
  Receipt Date: 20061128
  Transmission Date: 20070319
  Serious: Yes (Hospitalization)
  Sender: FDA-Public Use
  Company Number: 2006150023

PATIENT
  Sex: Female

DRUGS (2)
  1. CELEBREX [Suspect]
     Dates: start: 20000601, end: 20040930
  2. VIOXX [Suspect]
     Dates: start: 20010827, end: 20040930

REACTIONS (2)
  - AMPUTATION [None]
  - THROMBOSIS [None]
